FAERS Safety Report 7046422-4 (Version None)
Quarter: 2010Q4

REPORT INFORMATION
  Report Type: 
  Country: None (occurrence: None)
  Receive Date: 20101014
  Receipt Date: 20101006
  Transmission Date: 20110411
  Serious: No
  Sender: FDA-Public Use
  Company Number: US-PFIZER INC-2010127290

PATIENT
  Sex: Male
  Weight: 82.993 kg

DRUGS (2)
  1. TOVIAZ [Suspect]
     Indication: PROSTATOMEGALY
     Dosage: 4 MG, DAILY
     Route: 048
     Dates: start: 20100901, end: 20101001
  2. TOVIAZ [Suspect]
     Indication: POLLAKIURIA

REACTIONS (1)
  - DRUG INEFFECTIVE [None]
